FAERS Safety Report 10870259 (Version 2)
Quarter: 2015Q2

REPORT INFORMATION
  Report Type: Spontaneous
  Country: US (occurrence: US)
  Receive Date: 20150226
  Receipt Date: 20150407
  Transmission Date: 20150821
  Serious: Yes (Hospitalization)
  Sender: FDA-Public Use
  Company Number: US-SA-2015SA021861

PATIENT
  Age: 80 Year
  Sex: Male

DRUGS (1)
  1. ALLEGRA [Suspect]
     Active Substance: FEXOFENADINE HYDROCHLORIDE
     Indication: MULTIPLE ALLERGIES
     Dosage: PRODUCT STARTED 10-12 YEARS AGO.
     Route: 048

REACTIONS (5)
  - Visual impairment [Unknown]
  - Amnesia [Unknown]
  - Cardiac disorder [Unknown]
  - Hypoacusis [Unknown]
  - Condition aggravated [Unknown]
